FAERS Safety Report 5048690-7 (Version None)
Quarter: 2006Q2

REPORT INFORMATION
  Report Type: 
  Country: None (occurrence: None)
  Receive Date: 20060601
  Receipt Date: 20060306
  Transmission Date: 20061013
  Serious: No
  Sender: FDA-Public Use
  Company Number: US200603001588

PATIENT
  Age: 49 Year
  Sex: Female

DRUGS (2)
  1. CYMBALTA [Suspect]
     Indication: BIPOLAR DISORDER
     Dosage: SEE IMAGE
     Route: 048
     Dates: start: 20050901, end: 20060101
  2. CYMBALTA [Suspect]
     Indication: BIPOLAR DISORDER
     Dosage: SEE IMAGE
     Route: 048
     Dates: start: 20060101

REACTIONS (1)
  - PANIC REACTION [None]
